FAERS Safety Report 20904259 (Version 1)
Quarter: 2022Q2

REPORT INFORMATION
  Report Type: Spontaneous
  Country: US (occurrence: US)
  Receive Date: 20220602
  Receipt Date: 20220602
  Transmission Date: 20220721
  Serious: No
  Sender: FDA-Public Use
  Company Number: US-Vifor (International) Inc.-VIT-2022-01642

PATIENT
  Age: 53 Year
  Sex: Male
  Weight: 67 kg

DRUGS (1)
  1. VELPHORO [Suspect]
     Active Substance: SUCROFERRIC OXYHYDROXIDE
     Indication: Phosphorus metabolism disorder
     Dosage: ENDED BEFORE 15.SEP.2021
     Route: 048
     Dates: start: 202108, end: 202109

REACTIONS (1)
  - Diarrhoea [Recovered/Resolved]
